FAERS Safety Report 6212889-4 (Version None)
Quarter: 2009Q2

REPORT INFORMATION
  Report Type: 
  Country: None (occurrence: None)
  Receive Date: 20090601
  Receipt Date: 20090527
  Transmission Date: 20091009
  Serious: Yes (Other)
  Sender: FDA-Public Use
  Company Number: CERZ-1000600

PATIENT
  Age: 67 Year
  Sex: Female
  Weight: 64.9 kg

DRUGS (2)
  1. CEREZYME [Suspect]
     Indication: GAUCHER'S DISEASE
     Dosage: 4000 U, 2QW, INTRAVENOUS
     Route: 042
     Dates: start: 20080801
  2. FORTEO (TERIPERATIDE) [Concomitant]

REACTIONS (9)
  - ARTHRALGIA [None]
  - BACK PAIN [None]
  - IMMUNE SYSTEM DISORDER [None]
  - INTERVERTEBRAL DISC DEGENERATION [None]
  - NEUROPATHY PERIPHERAL [None]
  - OSTEOARTHRITIS [None]
  - OSTEOPOROSIS [None]
  - TEMPERATURE INTOLERANCE [None]
  - UNEQUAL LIMB LENGTH [None]
